FAERS Safety Report 14271294 (Version 10)
Quarter: 2018Q4

REPORT INFORMATION
  Report Type: Spontaneous
  Country: PT (occurrence: PT)
  Receive Date: 20171211
  Receipt Date: 20181005
  Transmission Date: 20190204
  Serious: Yes (Disabling)
  Sender: FDA-Public Use
  Company Number: PT-MYLANLABS-2017M1077163

PATIENT
  Age: 79 Year
  Sex: Female
  Weight: 68 kg

DRUGS (28)
  1. TRAMADOL. [Suspect]
     Active Substance: TRAMADOL
     Dosage: 200 MG, QD
     Route: 048
     Dates: start: 201708, end: 20171003
  2. TRAMADOL. [Suspect]
     Active Substance: TRAMADOL
     Dosage: 1 DF, QD
     Route: 048
     Dates: start: 20170817, end: 20170824
  3. PARACETAMOL [Suspect]
     Active Substance: ACETAMINOPHEN
     Dosage: 1 G, QD
     Route: 048
     Dates: start: 20170824, end: 20170920
  4. METAMIZOLE MAGNESIUM [Suspect]
     Active Substance: METAMIZOLE MAGNESIUM
     Indication: OSTEOARTHRITIS
     Dosage: 1 DF, QD
     Route: 042
     Dates: end: 20170816
  5. DIAMICRON LM [Concomitant]
     Active Substance: GLICLAZIDE
     Indication: BLOOD GLUCOSE INCREASED
  6. OMEPRAZOLE. [Concomitant]
     Active Substance: OMEPRAZOLE
     Dosage: 20 MG, QD
     Dates: start: 2008
  7. NOLOTIL (METAMIZOLE MAGNESIUM) [Suspect]
     Active Substance: METAMIZOLE MAGNESIUM
     Indication: OSTEOPOROSIS PROPHYLAXIS
  8. LISALGIL [Suspect]
     Active Substance: METAMIZOLE SODIUM
     Indication: OSTEOPOROSIS PROPHYLAXIS
  9. CARTIA [Concomitant]
     Dosage: 100 MG, Q2D(100 MG EM DIASALTERNADOS)
     Route: 048
     Dates: start: 1992
  10. DIAMICRON LM [Concomitant]
     Active Substance: GLICLAZIDE
     Indication: GLUCOSE TOLERANCE IMPAIRED
     Dosage: 30 MG, QD
     Route: 048
     Dates: start: 2015
  11. PARACETAMOL [Suspect]
     Active Substance: ACETAMINOPHEN
     Dosage: 1 G, UNK
     Route: 048
     Dates: end: 20170823
  12. PARACETAMOL SANDOZ [Suspect]
     Active Substance: ACETAMINOPHEN
     Indication: OSTEOARTHRITIS
     Dosage: 1 G, QD
     Route: 048
     Dates: end: 20170920
  13. NOLOTIL (METAMIZOLE MAGNESIUM) [Suspect]
     Active Substance: METAMIZOLE MAGNESIUM
     Indication: OSTEOARTHRITIS
     Route: 042
     Dates: start: 20170810, end: 20170816
  14. TRAMADOL. [Suspect]
     Active Substance: TRAMADOL
     Indication: OSTEOARTHRITIS
     Dosage: 1 DF, UNK
     Route: 042
     Dates: start: 20170810, end: 20170817
  15. METAMIZOLE MAGNESIUM [Suspect]
     Active Substance: METAMIZOLE MAGNESIUM
     Indication: OSTEOPOROSIS PROPHYLAXIS
  16. HYTACAND [Concomitant]
     Active Substance: CANDESARTAN CILEXETIL\HYDROCHLOROTHIAZIDE
     Indication: HYPERTENSION
     Dosage: 16 MG, QD
     Route: 048
     Dates: start: 19910101
  17. HYTACAND [Concomitant]
     Active Substance: CANDESARTAN CILEXETIL\HYDROCHLOROTHIAZIDE
     Dosage: 1 DF, UNK
     Dates: start: 1991
  18. FOSAVANCE [Concomitant]
     Active Substance: ALENDRONATE SODIUM\CHOLECALCIFEROL
     Indication: OSTEOPOROSIS PROPHYLAXIS
     Dosage: 1 DF, QW(1 COMPRIMIDO/SEMANA)
     Route: 048
  19. TRAMADOL. [Suspect]
     Active Substance: TRAMADOL
     Indication: OSTEOARTHRITIS
     Dosage: 1 DF, QD
     Route: 048
     Dates: start: 201708, end: 201708
  20. LISALGIL [Suspect]
     Active Substance: METAMIZOLE SODIUM
     Indication: OSTEOARTHRITIS
     Dosage: 1 DF, UNK
     Route: 042
     Dates: end: 20170815
  21. TRIDURAL [Suspect]
     Active Substance: TRAMADOL HYDROCHLORIDE
     Indication: OSTEOARTHRITIS
     Dosage: 100 MG, BID
     Route: 048
     Dates: start: 20170824, end: 20171003
  22. TRIDURAL [Suspect]
     Active Substance: TRAMADOL HYDROCHLORIDE
     Dosage: 100 MG, BID
     Route: 048
     Dates: start: 20170810
  23. AMLODIPINE [Concomitant]
     Active Substance: AMLODIPINE BESYLATE
     Indication: HYPERTENSION
     Dosage: 5 MG, QD
     Route: 048
     Dates: start: 2012
  24. CARTIA [Concomitant]
     Dosage: 100 MG, QD
     Route: 048
  25. TENORMINE [Concomitant]
     Active Substance: ATENOLOL
     Indication: HYPERTENSION
     Dosage: 50 MG, QD
     Route: 048
     Dates: start: 1991
  26. OMEPRAZOLE. [Concomitant]
     Active Substance: OMEPRAZOLE
     Indication: PROPHYLAXIS AGAINST GASTROINTESTINAL ULCER
     Dosage: 20 MG, QD
     Route: 048
     Dates: start: 20080101
  27. PARACETAMOL [Suspect]
     Active Substance: ACETAMINOPHEN
     Indication: OSTEOARTHRITIS
     Dosage: 1 DF, QD
     Route: 042
     Dates: start: 20170810, end: 20170817
  28. CARTIA [Concomitant]
     Indication: PROPHYLAXIS
     Dosage: 200 MG, QD
     Route: 048
     Dates: start: 19920101

REACTIONS (12)
  - Tremor [Recovered/Resolved]
  - Vomiting [Recovered/Resolved]
  - Constipation [Recovered/Resolved]
  - Cachexia [Recovered/Resolved]
  - Hallucination, visual [Recovered/Resolved]
  - Decreased appetite [Recovered/Resolved]
  - Nausea [Recovered/Resolved]
  - Micturition frequency decreased [Recovered/Resolved]
  - Heart rate increased [Recovered/Resolved]
  - Abdominal distension [Recovered/Resolved]
  - Flatulence [Recovered/Resolved]
  - Diarrhoea [Recovered/Resolved]

NARRATIVE: CASE EVENT DATE: 20170801
